FAERS Safety Report 9090118 (Version 1)
Quarter: 2013Q1

REPORT INFORMATION
  Report Type: Report from Study
  Country: US (occurrence: US)
  Receive Date: 20130201
  Receipt Date: 20130201
  Transmission Date: 20140127
  Serious: No
  Sender: FDA-Public Use
  Company Number: US-ABBOTT-12P-163-1020934-00

PATIENT
  Sex: Male
  Weight: 31.78 kg

DRUGS (12)
  1. HUMIRA [Suspect]
     Indication: JUVENILE IDIOPATHIC ARTHRITIS
  2. HUMIRA [Suspect]
     Indication: SPONDYLOARTHROPATHY
  3. PENTASA [Concomitant]
     Indication: CROHN^S DISEASE
  4. TOLMETIN [Concomitant]
     Indication: JUVENILE IDIOPATHIC ARTHRITIS
  5. ADVAIR [Concomitant]
     Indication: ASTHMA
  6. PREVACID [Concomitant]
     Indication: GASTROOESOPHAGEAL REFLUX DISEASE
  7. PREVACID [Concomitant]
     Indication: CROHN^S DISEASE
  8. FISH OIL [Concomitant]
     Indication: SUPPLEMENTATION THERAPY
  9. FIBER [Concomitant]
     Indication: SUPPLEMENTATION THERAPY
  10. FOLIC ACID [Concomitant]
     Indication: SUPPLEMENTATION THERAPY
  11. ADDERALL [Concomitant]
     Indication: ATTENTION DEFICIT/HYPERACTIVITY DISORDER
  12. FERROUS SULFATE [Concomitant]
     Indication: SUPPLEMENTATION THERAPY

REACTIONS (5)
  - Off label use [Recovered/Resolved]
  - Rash macular [Recovered/Resolved]
  - Rash macular [Recovered/Resolved]
  - Pruritus [Recovered/Resolved]
  - Molluscum contagiosum [Recovered/Resolved]
